FAERS Safety Report 15020425 (Version 3)
Quarter: 2024Q1

REPORT INFORMATION
  Report Type: Other
  Country: US (occurrence: None)
  Receive Date: 20180618
  Receipt Date: 20240315
  Transmission Date: 20240409
  Serious: Yes (Other)
  Sender: FDA-Public Use
  Company Number: US-ROCHE-2140426

PATIENT
  Age: 47 Year
  Sex: Female
  Weight: 56.296 kg

DRUGS (10)
  1. OCREVUS [Suspect]
     Active Substance: OCRELIZUMAB
     Indication: Relapsing-remitting multiple sclerosis
     Dosage: TWO HALF DOSES TWO WEEKS APART. THEN ONCE EVERY 6 MONTHS. MOST RECENT INFUSION WAS ON 06/MAR/2024.
     Route: 042
     Dates: start: 201707
  2. OCREVUS [Suspect]
     Active Substance: OCRELIZUMAB
     Route: 042
  3. CYMBALTA [Concomitant]
     Active Substance: DULOXETINE HYDROCHLORIDE
     Dosage: ONGOING: YES
  4. ELMIRON [Concomitant]
     Active Substance: PENTOSAN POLYSULFATE SODIUM
     Dosage: ONGOING: YES
  5. HYDROXYZINE PAMOATE [Concomitant]
     Active Substance: HYDROXYZINE PAMOATE
     Dosage: ONGOING: YES
  6. BACLOFEN [Concomitant]
     Active Substance: BACLOFEN
     Dosage: ONGOING: YES
  7. GABAPENTIN [Concomitant]
     Active Substance: GABAPENTIN
     Dosage: ONGOING: YES
  8. DANTROLENE [Concomitant]
     Active Substance: DANTROLENE
     Dosage: ONGOING: YES
  9. TEGRETOL [Concomitant]
     Active Substance: CARBAMAZEPINE
     Dosage: ONGOING: YES
  10. AMITRIPTYLINE [Concomitant]
     Active Substance: AMITRIPTYLINE
     Dosage: ONGOING: YES

REACTIONS (2)
  - Urinary tract infection [Unknown]
  - Therapeutic response decreased [Unknown]
